FAERS Safety Report 17438482 (Version 4)
Quarter: 2021Q4

REPORT INFORMATION
  Report Type: Report from Study
  Country: BE (occurrence: BE)
  Receive Date: 20200220
  Receipt Date: 20211219
  Transmission Date: 20220303
  Serious: Yes (Hospitalization)
  Sender: FDA-Public Use
  Company Number: BE-ABBVIE-19S-013-2791508-00

PATIENT
  Sex: Female
  Weight: 58 kg

DRUGS (20)
  1. CARBIDOPA\LEVODOPA [Suspect]
     Active Substance: CARBIDOPA\LEVODOPA
     Indication: Parkinson^s disease
     Dosage: MD= 0.5ML CD= 1.8ML/HR DURING 16HRS  ED= 0.5ML
     Route: 050
     Dates: start: 20190416, end: 20190419
  2. CARBIDOPA\LEVODOPA [Suspect]
     Active Substance: CARBIDOPA\LEVODOPA
     Dosage: MD= 0ML CD= 1.5ML/HR DURING 16HRS  ED= 0.5ML
     Route: 050
     Dates: start: 20190419, end: 20190425
  3. CARBIDOPA\LEVODOPA [Suspect]
     Active Substance: CARBIDOPA\LEVODOPA
     Dosage: MD= 1ML CD= 1.7ML/HR DURING 16HRS  ED= 0.5ML
     Route: 050
     Dates: start: 20190425, end: 20190514
  4. CARBIDOPA\LEVODOPA [Suspect]
     Active Substance: CARBIDOPA\LEVODOPA
     Dosage: MD= 2ML CD= 1.7ML/HR DURING 16HRS  ED= 0.8ML
     Route: 050
     Dates: start: 20190514, end: 20190605
  5. CARBIDOPA\LEVODOPA [Suspect]
     Active Substance: CARBIDOPA\LEVODOPA
     Dosage: MD=2ML?CD=1.9ML/HR DURING 16HRS?ED=0.8ML
     Route: 050
     Dates: start: 20190605, end: 20190605
  6. CARBIDOPA\LEVODOPA [Suspect]
     Active Substance: CARBIDOPA\LEVODOPA
     Route: 050
     Dates: start: 20190605, end: 20190618
  7. CARBIDOPA\LEVODOPA [Suspect]
     Active Substance: CARBIDOPA\LEVODOPA
     Dosage: MD= 3ML, CD= 1.9ML/HR DURING 16HRS, ED= 0.8ML
     Route: 050
     Dates: start: 20190618, end: 20210420
  8. CARBIDOPA\LEVODOPA [Suspect]
     Active Substance: CARBIDOPA\LEVODOPA
     Dosage: MD= 3ML, CD= 1.6ML/HR DURING 16HRS, ED= 0.8ML
     Route: 050
     Dates: start: 20210420, end: 20210615
  9. CARBIDOPA\LEVODOPA [Suspect]
     Active Substance: CARBIDOPA\LEVODOPA
     Dosage: MD 3.0 ML; CD 1.5 ML/H; ED 0.8 ML DURING 16 HRS
     Route: 050
     Dates: start: 20210615
  10. BENSERAZIDE\LEVODOPA [Concomitant]
     Active Substance: BENSERAZIDE\LEVODOPA
     Indication: Parkinson^s disease
     Dosage: FORM STRENGTH: 200MG/50MG?4 TIMES A QUARTER?AT 8:00, 12:00, 17:00, 22:00
     Route: 048
  11. AZILECT [Concomitant]
     Active Substance: RASAGILINE MESYLATE
     Indication: Parkinson^s disease
     Route: 048
  12. AZILECT [Concomitant]
     Active Substance: RASAGILINE MESYLATE
  13. AZILECT [Concomitant]
     Active Substance: RASAGILINE MESYLATE
     Dosage: AT 8:00
  14. NABUMETONE [Concomitant]
     Active Substance: NABUMETONE
     Indication: Product used for unknown indication
  15. MOVICOL [Concomitant]
     Active Substance: POLYETHYLENE GLYCOL 3350\POTASSIUM CHLORIDE\SODIUM BICARBONATE\SODIUM CHLORIDE
     Indication: Product used for unknown indication
  16. PAROXETINE HYDROCHLORIDE [Concomitant]
     Active Substance: PAROXETINE HYDROCHLORIDE
     Indication: Product used for unknown indication
  17. INSULIN GLARGINE [Concomitant]
     Active Substance: INSULIN GLARGINE
     Indication: Product used for unknown indication
  18. TOUJEO [Concomitant]
     Active Substance: INSULIN GLARGINE
     Indication: Product used for unknown indication
  19. NOVORAPID [Concomitant]
     Active Substance: INSULIN ASPART
     Indication: Product used for unknown indication
  20. PRAMIPEXOLE [Concomitant]
     Active Substance: PRAMIPEXOLE
     Indication: Product used for unknown indication
     Dosage: AT 8:00

REACTIONS (9)
  - Blood glucose abnormal [Unknown]
  - Medical device discomfort [Unknown]
  - Gait disturbance [Recovered/Resolved]
  - Dyskinesia [Recovered/Resolved]
  - Freezing phenomenon [Recovered/Resolved]
  - Therapeutic response shortened [Recovered/Resolved]
  - Therapeutic product effect incomplete [Recovered/Resolved]
  - Device physical property issue [Unknown]
  - Dyskinesia [Recovered/Resolved]

NARRATIVE: CASE EVENT DATE: 20190101
